FAERS Safety Report 7039796-1 (Version None)
Quarter: 2010Q4

REPORT INFORMATION
  Report Type: 
  Country: None (occurrence: None)
  Receive Date: 20101012
  Receipt Date: 20101006
  Transmission Date: 20110411
  Serious: Yes (Other)
  Sender: FDA-Public Use
  Company Number: CA-MERCK-1010USA00946

PATIENT
  Age: 9 Year
  Sex: Male
  Weight: 38 kg

DRUGS (3)
  1. SINGULAIR [Suspect]
     Route: 048
  2. AVAMYS [Concomitant]
     Route: 065
  3. AERIUS [Concomitant]
     Route: 065

REACTIONS (7)
  - ABNORMAL DREAMS [None]
  - AGGRESSION [None]
  - AGITATION [None]
  - ENURESIS [None]
  - FEELINGS OF WORTHLESSNESS [None]
  - IMPATIENCE [None]
  - OBSESSIVE-COMPULSIVE DISORDER [None]
